FAERS Safety Report 4600383-3 (Version None)
Quarter: 2005Q1

REPORT INFORMATION
  Report Type: 
  Country: None (occurrence: None)
  Receive Date: 20050127
  Receipt Date: 20041011
  Transmission Date: 20050727
  Serious: No
  Sender: FDA-Public Use
  Company Number: USA041080776

PATIENT
  Sex: Female
  Weight: 105 kg

DRUGS (6)
  1. STRATTERA [Suspect]
     Indication: DEPRESSION
     Dosage: 120 MG DAY
     Dates: start: 20031001
  2. ZOLOFT [Concomitant]
  3. ATENOLOL [Concomitant]
  4. AMILORID/HCTZ [Concomitant]
  5. TRAZADONE [Concomitant]
  6. DULOXETINE [Concomitant]

REACTIONS (3)
  - FEELING HOT [None]
  - HYPERHIDROSIS [None]
  - PRESCRIBED OVERDOSE [None]
